FAERS Safety Report 6088109-0 (Version None)
Quarter: 2009Q1

REPORT INFORMATION
  Report Type: 
  Country: None (occurrence: None)
  Receive Date: 20090220
  Receipt Date: 20090206
  Transmission Date: 20090719
  Serious: Yes (Hospitalization, Other)
  Sender: FDA-Public Use
  Company Number: 2009SP003030

PATIENT
  Age: 64 Year
  Sex: Male

DRUGS (4)
  1. EPTIFIBATIDE (S-P) [Suspect]
     Indication: ACUTE MYOCARDIAL INFARCTION
     Dosage: 180 MCG/KG;ONCE;  2 MCG/KG; 1 MCG/KG
  2. ENOXAPARIN SODIUM [Concomitant]
  3. CLOPIDOGREL [Concomitant]
  4. ASPIRIN [Concomitant]

REACTIONS (15)
  - ALCOHOL WITHDRAWAL SYNDROME [None]
  - BLOOD IMMUNOGLOBULIN M INCREASED [None]
  - CARDIOGENIC SHOCK [None]
  - CORONARY ARTERY DISEASE [None]
  - DYSPNOEA [None]
  - ECG SIGNS OF MYOCARDIAL ISCHAEMIA [None]
  - ECHOCARDIOGRAM ABNORMAL [None]
  - EPISTAXIS [None]
  - GINGIVAL BLEEDING [None]
  - HYPOXIA [None]
  - IN-STENT CORONARY ARTERY RESTENOSIS [None]
  - MUCOSAL HAEMORRHAGE [None]
  - THROMBOCYTOPENIA [None]
  - THROMBOSIS IN DEVICE [None]
  - TRACHEAL DISORDER [None]
